FAERS Safety Report 22334063 (Version 2)
Quarter: 2023Q2

REPORT INFORMATION
  Report Type: Spontaneous
  Country: BE (occurrence: BE)
  Receive Date: 20230517
  Receipt Date: 20230518
  Transmission Date: 20230721
  Serious: Yes (Life-Threatening, Other)
  Sender: FDA-Public Use
  Company Number: BE-MLMSERVICE-20230503-4262373-1

PATIENT
  Age: 30 Year
  Sex: Male

DRUGS (5)
  1. METHYLPREDNISOLONE SODIUM SUCCINATE [Suspect]
     Active Substance: METHYLPREDNISOLONE SODIUM SUCCINATE
     Indication: Bartter^s syndrome
     Dosage: HIGH DOSES OF LOCAL AND I.V. METHYLPREDNISOLONE
  2. METHYLPREDNISOLONE SODIUM SUCCINATE [Suspect]
     Active Substance: METHYLPREDNISOLONE SODIUM SUCCINATE
     Dosage: HIGH DOSES OF LOCAL AND I.V. METHYLPREDNISOLONE
     Route: 042
  3. METHYLPREDNISOLONE [Suspect]
     Active Substance: METHYLPREDNISOLONE
     Indication: Bartter^s syndrome
     Dosage: UNK (ORAL DOSES)
     Route: 048
  4. PREDNISOLONE [Suspect]
     Active Substance: PREDNISOLONE
     Indication: Sarcoidosis
     Dosage: 16 MG, 1X/DAY
     Route: 048
  5. INDOMETHACIN [Concomitant]
     Active Substance: INDOMETHACIN
     Indication: Bartter^s syndrome
     Dosage: UNK

REACTIONS (4)
  - Cushing^s syndrome [Unknown]
  - Osteoporosis [Unknown]
  - Spinal deformity [Unknown]
  - Amyotrophy [Unknown]
